FAERS Safety Report 4382119-7 (Version None)
Quarter: 2004Q2

REPORT INFORMATION
  Report Type: 
  Country: None (occurrence: None)
  Receive Date: 20040603
  Receipt Date: 20030408
  Transmission Date: 20050107
  Serious: Yes (Other)
  Sender: FDA-Public Use
  Company Number: 200221583US

PATIENT
  Age: 58 Year
  Sex: Male
  Weight: 90 kg

DRUGS (5)
  1. LOVENOX [Suspect]
     Indication: ACUTE MYOCARDIAL INFARCTION
     Dosage: 0.75 MG/KG
     Dates: start: 20021107
  2. LOVENOX [Suspect]
     Indication: CORONARY ANGIOPLASTY
     Dosage: 0.75 MG/KG
     Dates: start: 20021107
  3. ABCIXIMAB [Concomitant]
  4. METIPROLOL [Concomitant]
  5. ASPIRIN [Concomitant]

REACTIONS (1)
  - CORONARY ARTERY THROMBOSIS [None]
